FAERS Safety Report 13071703 (Version 2)
Quarter: 2017Q1

REPORT INFORMATION
  Report Type: Report from Study
  Country: NL (occurrence: NL)
  Receive Date: 20161229
  Receipt Date: 20170103
  Transmission Date: 20170428
  Serious: Yes (Death)
  Sender: FDA-Public Use
  Company Number: NL-PFIZER INC-2016597491

PATIENT
  Age: 74 Year
  Sex: Female

DRUGS (13)
  1. ACENOCOUMAROL [Concomitant]
     Active Substance: ACENOCOUMAROL
     Route: 048
  2. CRESTOR [Concomitant]
     Active Substance: ROSUVASTATIN CALCIUM
     Route: 048
  3. ISOSORBIDEDINITRAAT [Concomitant]
     Route: 048
  4. TAMBOCOR [Concomitant]
     Active Substance: FLECAINIDE ACETATE
     Route: 048
  5. FENTANYL. [Concomitant]
     Active Substance: FENTANYL
     Route: 062
  6. TRAMADOL. [Concomitant]
     Active Substance: TRAMADOL
     Route: 048
  7. FOSTER /00500401/ [Concomitant]
     Active Substance: PIROXICAM
     Route: 055
  8. OXYCODON [Concomitant]
     Active Substance: OXYCODONE
     Route: 048
  9. BOSUTINIB [Suspect]
     Active Substance: BOSUTINIB
     Dosage: 500 MG, 1X/DAY
     Dates: start: 20141120, end: 20141128
  10. PARACETAMOL [Concomitant]
     Active Substance: ACETAMINOPHEN
     Route: 048
  11. VERAPAMIL [Concomitant]
     Active Substance: VERAPAMIL HYDROCHLORIDE
     Route: 048
  12. SALBUTAMOL [Concomitant]
     Active Substance: ALBUTEROL
     Route: 055
  13. PANTOPRAZOL [Concomitant]
     Active Substance: PANTOPRAZOLE SODIUM
     Route: 048

REACTIONS (2)
  - Fatigue [Unknown]
  - Pyrexia [Fatal]

NARRATIVE: CASE EVENT DATE: 201411
